FAERS Safety Report 14693672 (Version 2)
Quarter: 2018Q2

REPORT INFORMATION
  Report Type: Spontaneous
  Country: JP (occurrence: JP)
  Receive Date: 20180329
  Receipt Date: 20180622
  Transmission Date: 20180711
  Serious: Yes (Death, Other)
  Sender: FDA-Public Use
  Company Number: JP-009507513-1711JPN001520J

PATIENT
  Age: 70 Year
  Sex: Male
  Weight: 55 kg

DRUGS (7)
  1. NEXIUM [Concomitant]
     Active Substance: ESOMEPRAZOLE MAGNESIUM
     Indication: PROPHYLAXIS
     Dosage: 20.0 MG, QD
     Route: 048
  2. LOXOPROFEN [Concomitant]
     Active Substance: LOXOPROFEN
     Indication: LUNG ADENOCARCINOMA
     Dosage: 60.0 MG, TID
     Route: 048
  3. CALONAL [Concomitant]
     Active Substance: ACETAMINOPHEN
     Indication: LUNG ADENOCARCINOMA
     Dosage: 400.0 MG, TID
     Route: 048
  4. HOKUNALIN:TAPE [Concomitant]
     Active Substance: TULOBUTEROL
     Dosage: UNK
     Route: 062
  5. KEYTRUDA [Suspect]
     Active Substance: PEMBROLIZUMAB
     Indication: LUNG ADENOCARCINOMA
     Dosage: 200 MG, Q3W
     Route: 041
     Dates: start: 20170316, end: 20170426
  6. KEYTRUDA [Suspect]
     Active Substance: PEMBROLIZUMAB
     Dosage: 200 MG, Q3W
     Route: 041
     Dates: start: 20170619, end: 20171225
  7. SPIRIVA [Concomitant]
     Active Substance: TIOTROPIUM BROMIDE MONOHYDRATE
     Dosage: UNK
     Route: 055

REACTIONS (2)
  - Malignant neoplasm progression [Fatal]
  - Interstitial lung disease [Recovering/Resolving]

NARRATIVE: CASE EVENT DATE: 20170603
